FAERS Safety Report 5968032-X (Version None)
Quarter: 2008Q4

REPORT INFORMATION
  Report Type: 
  Country: None (occurrence: None)
  Receive Date: 20081119
  Receipt Date: 20080911
  Transmission Date: 20090506
  Serious: No
  Sender: FDA-Public Use
  Company Number: WAES 0809USA01757

PATIENT
  Age: 50 Year
  Sex: Female

DRUGS (15)
  1. JANUVIA [Suspect]
     Indication: TYPE 2 DIABETES MELLITUS
     Dosage: 100 MG/DAILY/PO
     Route: 048
     Dates: start: 20080910
  2. ALLEGRA [Concomitant]
  3. AMBIEN [Concomitant]
  4. CYTOMEL [Concomitant]
  5. EVISTA [Concomitant]
  6. KEPPRA [Concomitant]
  7. KLONOPIN [Concomitant]
  8. METAMUCIL [Concomitant]
  9. SINEQUAN [Concomitant]
  10. SKELAXIN [Concomitant]
  11. GLIPIZIDE [Concomitant]
  12. METFORMIN HCL [Concomitant]
  13. MORPHINE [Concomitant]
  14. VITAMIN D (UNSPECIFIED) [Concomitant]
  15. VITAMINS (UNSPECIFIED) [Concomitant]

REACTIONS (2)
  - CHILLS [None]
  - FEELING COLD [None]
